FAERS Safety Report 17046784 (Version 3)
Quarter: 2019Q4

REPORT INFORMATION
  Report Type: Spontaneous
  Country: US (occurrence: US)
  Receive Date: 20191119
  Receipt Date: 20191216
  Transmission Date: 20200122
  Serious: No
  Sender: FDA-Public Use
  Company Number: US-SAGE-2019SAGE000068

PATIENT

DRUGS (2)
  1. ANTIDEPRESSANTS [Concomitant]
     Active Substance: UNSPECIFIED INGREDIENT
     Indication: DEPRESSION
     Dosage: UNK
     Route: 065
  2. ZULRESSO [Suspect]
     Active Substance: BREXANOLONE
     Indication: PERINATAL DEPRESSION
     Dosage: UNK
     Route: 042
     Dates: start: 20191104, end: 20191106

REACTIONS (6)
  - Anxiety [Unknown]
  - Drug ineffective [Unknown]
  - Panic attack [Unknown]
  - Confusional state [Unknown]
  - Somnolence [Unknown]
  - Intrusive thoughts [Unknown]

NARRATIVE: CASE EVENT DATE: 201911
